FAERS Safety Report 5711374-3 (Version None)
Quarter: 2008Q2

REPORT INFORMATION
  Report Type: 
  Country: None (occurrence: None)
  Receive Date: 20080421
  Receipt Date: 20080417
  Transmission Date: 20081010
  Serious: Yes (Other)
  Sender: FDA-Public Use
  Company Number: D0056661A

PATIENT

DRUGS (2)
  1. ZANTAC [Suspect]
     Route: 065
  2. CLEMASTINE FUMARATE [Suspect]
     Route: 065

REACTIONS (2)
  - CIRCULATORY COLLAPSE [None]
  - PHARMACEUTICAL PRODUCT COMPLAINT [None]
